FAERS Safety Report 8551166-3 (Version None)
Quarter: 2012Q3

REPORT INFORMATION
  Report Type: 
  Country: None (occurrence: None)
  Receive Date: 20120730
  Receipt Date: 20111208
  Transmission Date: 20120928
  Serious: No
  Sender: FDA-Public Use
  Company Number: US-ALLERGAN-1116091US

PATIENT
  Sex: Female

DRUGS (1)
  1. LUMIGAN [Suspect]
     Indication: INTRAOCULAR PRESSURE INCREASED
     Dosage: 2 GTT, QHS
     Route: 047
     Dates: start: 20111001, end: 20111101

REACTIONS (5)
  - VISION BLURRED [None]
  - OCULAR HYPERAEMIA [None]
  - EYELID PAIN [None]
  - EYE DISORDER [None]
  - EYE PAIN [None]
